FAERS Safety Report 4423334-3 (Version None)
Quarter: 2004Q3

REPORT INFORMATION
  Report Type: 
  Country: None (occurrence: None)
  Receive Date: 20040805
  Receipt Date: 20040722
  Transmission Date: 20050211
  Serious: Yes (Hospitalization)
  Sender: FDA-Public Use
  Company Number: 200312794

PATIENT
  Age: 64 Year
  Sex: Female
  Weight: 60.782 kg

DRUGS (23)
  1. BOTOX [Suspect]
     Indication: TORTICOLLIS
     Dosage: 400 UNITS ONCE IM
     Route: 030
     Dates: start: 20030521
  2. BOTOX [Suspect]
     Indication: TORTICOLLIS
     Dosage: 390 UNITS ONCE IM
     Route: 030
     Dates: start: 20021204
  3. BOTOX [Suspect]
     Indication: TORTICOLLIS
     Dosage: 400 UNITS ONCE IM
     Route: 030
     Dates: start: 20020703
  4. BOTOX [Suspect]
     Indication: TORTICOLLIS
     Dosage: 440 UNITS ONCE IM
     Route: 030
     Dates: start: 20011219
  5. BOTOX [Suspect]
     Indication: TORTICOLLIS
     Dosage: 540 UNITS ONCE IM
     Route: 030
     Dates: start: 20010530
  6. BOTOX [Suspect]
     Indication: TORTICOLLIS
     Dosage: 540 UNITS ONCE IM
     Route: 030
     Dates: start: 20001115
  7. BOTOX [Suspect]
     Indication: TORTICOLLIS
     Dosage: 540 UNITS ONCE IM
     Route: 030
     Dates: start: 20000614
  8. BOTOX [Suspect]
     Indication: TORTICOLLIS
     Dosage: 420 UNITS ONCE IM
     Route: 030
     Dates: start: 20000223
  9. ULTRAM [Concomitant]
  10. ORPHENADRINE HYDROCHLORIDE FILM TAB [Concomitant]
  11. CHLORZOXAZONE [Concomitant]
  12. VENLAFAXINE HCL [Concomitant]
  13. ZOCOR [Concomitant]
  14. ZOLPIDEM TARTRATE [Concomitant]
  15. CONJUGATED ESTROGENS [Concomitant]
  16. PLAVIX [Concomitant]
  17. PEPCID [Concomitant]
  18. ATIVAN [Concomitant]
  19. ASPIRIN [Concomitant]
  20. LOPRESSOR [Concomitant]
  21. PARAFON [Concomitant]
  22. NORFLEX [Concomitant]
  23. PREVACID [Concomitant]

REACTIONS (14)
  - ABASIA [None]
  - ACTIVITIES OF DAILY LIVING IMPAIRED [None]
  - ANXIETY [None]
  - ASTHENIA [None]
  - CORONARY ARTERY ATHEROSCLEROSIS [None]
  - CORONARY ARTERY STENOSIS [None]
  - DYSPHAGIA [None]
  - DYSPHONIA [None]
  - DYSPNOEA [None]
  - DYSSTASIA [None]
  - LOSS OF CONSCIOUSNESS [None]
  - MYOCARDIAL ISCHAEMIA [None]
  - PNEUMONIA [None]
  - PNEUMONIA ASPIRATION [None]
